FAERS Safety Report 11330107 (Version 1)
Quarter: 2015Q3

REPORT INFORMATION
  Report Type: Spontaneous
  Country: US (occurrence: None)
  Receive Date: 20150730
  Receipt Date: 20150730
  Transmission Date: 20151125
  Serious: Yes (Life-Threatening, Hospitalization)
  Sender: FDA-Public Use
  Company Number: None

PATIENT
  Age: 67 Year
  Sex: Male
  Weight: 99.8 kg

DRUGS (2)
  1. INSULIN [Suspect]
     Active Substance: INSULIN NOS
     Indication: DEPRESSION
     Route: 058
     Dates: start: 20130906
  2. METFORMIN [Suspect]
     Active Substance: METFORMIN HYDROCHLORIDE
     Indication: DIABETES MELLITUS
     Dates: start: 20130906

REACTIONS (4)
  - Fall [None]
  - Dizziness postural [None]
  - Hypoglycaemia [None]
  - Accidental overdose [None]

NARRATIVE: CASE EVENT DATE: 20150525
